FAERS Safety Report 24156472 (Version 3)
Quarter: 2024Q3

REPORT INFORMATION
  Report Type: Spontaneous
  Country: US (occurrence: US)
  Receive Date: 20240731
  Receipt Date: 20240822
  Transmission Date: 20241017
  Serious: No
  Sender: ROCHE
  Company Number: US-ROCHE-10000038501

PATIENT
  Sex: Female

DRUGS (1)
  1. ACTEMRA [Suspect]
     Active Substance: TOCILIZUMAB
     Indication: Product used for unknown indication
     Dosage: DRUG STILL BEING ADMINISTERED, 162 MG/0.9 ML EVERY OTHER SUNDAY
     Route: 058
     Dates: start: 202402

REACTIONS (7)
  - Device mechanical issue [Unknown]
  - Product complaint [Unknown]
  - Pain [Unknown]
  - Device defective [Unknown]
  - Needle issue [Unknown]
  - Wrong technique in product usage process [Unknown]
  - Device malfunction [Unknown]

NARRATIVE: CASE EVENT DATE: 20240721
